FAERS Safety Report 10056087 (Version 1)
Quarter: 2014Q2

REPORT INFORMATION
  Report Type: Spontaneous
  Country: US (occurrence: None)
  Receive Date: 20140401
  Receipt Date: 20140401
  Transmission Date: 20141212
  Serious: Yes (Other)
  Sender: FDA-Public Use
  Company Number: FK201401090

PATIENT
  Age: 6 Year
  Sex: Female

DRUGS (8)
  1. ETOPOSIDE [Suspect]
     Indication: OVARIAN CANCER
  2. VINBLASTINE [Suspect]
     Indication: OVARIAN CANCER
  3. BLEOMYCIN [Suspect]
     Indication: OVARIAN CANCER
     Dosage: 15, IU/M2?
  4. DOXORUBICIN [Suspect]
     Indication: OVARIAN CANCER
  5. CISPLATIN [Suspect]
     Indication: OVARIAN CANCER
  6. CARBOPLATIN [Suspect]
     Indication: OVARIAN CANCER
  7. CYCLOPHOSPHAMIDE [Suspect]
     Indication: OVARIAN CANCER
  8. MELPHALAN [Suspect]
     Indication: OVARIAN CANCER

REACTIONS (7)
  - Febrile neutropenia [None]
  - Bone marrow failure [None]
  - Decreased appetite [None]
  - Venoocclusive liver disease [None]
  - Abdominal compartment syndrome [None]
  - Renal failure [None]
  - Respiratory failure [None]
